FAERS Safety Report 5005685-7 (Version None)
Quarter: 2006Q2

REPORT INFORMATION
  Report Type: 
  Country: None (occurrence: None)
  Receive Date: 20060515
  Receipt Date: 20060501
  Transmission Date: 20061013
  Serious: Yes (Hospitalization)
  Sender: FDA-Public Use
  Company Number: PHO-2006-015

PATIENT
  Age: 62 Year
  Sex: Male

DRUGS (1)
  1. PHOTOFRIN [Suspect]
     Indication: OESOPHAGEAL CARCINOMA
     Dosage: 180 MG, 2 SESSIONS
     Route: 042
     Dates: start: 20010201

REACTIONS (14)
  - ABSCESS [None]
  - BRONCHIAL DISORDER [None]
  - CANDIDA SEPSIS [None]
  - GASTROINTESTINAL NECROSIS [None]
  - HAEMODIALYSIS [None]
  - MEDIASTINITIS [None]
  - OESOPHAGEAL PERFORATION [None]
  - OROPHARYNGEAL CANDIDIASIS [None]
  - PLEURAL EFFUSION [None]
  - PNEUMONIA [None]
  - PULMONARY HAEMORRHAGE [None]
  - RENAL FAILURE [None]
  - RESPIRATORY FAILURE [None]
  - SYSTEMIC INFLAMMATORY RESPONSE SYNDROME [None]
